FAERS Safety Report 17546161 (Version 1)
Quarter: 2020Q1

REPORT INFORMATION
  Report Type: Report from Study
  Country: IT (occurrence: IT)
  Receive Date: 20200316
  Receipt Date: 20200316
  Transmission Date: 20200409
  Serious: Yes (Other)
  Sender: FDA-Public Use
  Company Number: IT-PFIZER INC-2020111641

PATIENT
  Age: 79 Year
  Sex: Female
  Weight: 69 kg

DRUGS (9)
  1. XARELTO [Suspect]
     Active Substance: RIVAROXABAN
     Indication: PULMONARY EMBOLISM
     Dosage: 30 MG, 1X/DAY
     Route: 048
     Dates: start: 20170807, end: 20171007
  2. CRESTOR [Suspect]
     Active Substance: ROSUVASTATIN CALCIUM
  3. SERTRALINE HCL [Suspect]
     Active Substance: SERTRALINE HYDROCHLORIDE
  4. FOSAVANCE [Suspect]
     Active Substance: ALENDRONATE SODIUM\CHOLECALCIFEROL
  5. DIBASE [Suspect]
     Active Substance: CHOLECALCIFEROL
  6. PANTOPRAZOLE [Suspect]
     Active Substance: PANTOPRAZOLE
  7. MEDROL [Suspect]
     Active Substance: METHYLPREDNISOLONE
  8. FOLINA [FOLIC ACID] [Suspect]
     Active Substance: FOLIC ACID
  9. METHOTREXATE. [Suspect]
     Active Substance: METHOTREXATE

REACTIONS (1)
  - Arthralgia [Recovering/Resolving]

NARRATIVE: CASE EVENT DATE: 20170807
